FAERS Safety Report 26105333 (Version 1)
Quarter: 2025Q4

REPORT INFORMATION
  Report Type: Spontaneous
  Country: CN (occurrence: CN)
  Receive Date: 20251201
  Receipt Date: 20251201
  Transmission Date: 20260117
  Serious: Yes (Life-Threatening, Hospitalization)
  Sender: BEIGENE
  Company Number: CN-BEONEMEDICINES-BGN-2025-021202

PATIENT
  Age: 65 Year
  Sex: Male
  Weight: 60 kg

DRUGS (6)
  1. TISLELIZUMAB [Suspect]
     Active Substance: TISLELIZUMAB
     Indication: Hepatocellular carcinoma
     Dosage: 0.2 GRAM, D1 Q3WK
     Dates: start: 20251015
  2. TISLELIZUMAB [Suspect]
     Active Substance: TISLELIZUMAB
     Dosage: 0.2 GRAM, D1 Q3WK
     Route: 041
     Dates: start: 20251015
  3. TISLELIZUMAB [Suspect]
     Active Substance: TISLELIZUMAB
     Dosage: 0.2 GRAM, D1 Q3WK
     Route: 041
     Dates: start: 20251015
  4. TISLELIZUMAB [Suspect]
     Active Substance: TISLELIZUMAB
     Dosage: 0.2 GRAM, D1 Q3WK
     Dates: start: 20251015
  5. LENVATINIB [Concomitant]
     Active Substance: LENVATINIB
     Indication: Hepatocellular carcinoma
     Dosage: 12 MILLIGRAM, QD Q3WK
     Route: 048
     Dates: start: 20251015
  6. LENVATINIB [Concomitant]
     Active Substance: LENVATINIB
     Dosage: 12 MILLIGRAM, QD Q3WK
     Dates: start: 20251015

REACTIONS (1)
  - Interstitial lung disease [Recovering/Resolving]

NARRATIVE: CASE EVENT DATE: 20251106
